FAERS Safety Report 25521296 (Version 3)
Quarter: 2025Q3

REPORT INFORMATION
  Report Type: Spontaneous
  Country: US (occurrence: US)
  Receive Date: 20250705
  Receipt Date: 20250807
  Transmission Date: 20251021
  Serious: No
  Sender: JOHNSON AND JOHNSON
  Company Number: US-JNJFOC-20250704093

PATIENT
  Age: 39 Year

DRUGS (6)
  1. RISPERDAL [Suspect]
     Active Substance: RISPERIDONE
     Indication: Schizophrenia
     Route: 065
     Dates: start: 20250701
  2. RISPERDAL [Suspect]
     Active Substance: RISPERIDONE
     Indication: Bipolar disorder
     Route: 065
  3. RISPERDAL [Suspect]
     Active Substance: RISPERIDONE
     Route: 065
  4. RISPERDAL [Suspect]
     Active Substance: RISPERIDONE
     Route: 065
  5. HALDOL [Suspect]
     Active Substance: HALOPERIDOL
     Indication: Schizophrenia
     Route: 065
  6. HALDOL [Suspect]
     Active Substance: HALOPERIDOL
     Indication: Bipolar disorder

REACTIONS (19)
  - Illness [Unknown]
  - Adverse drug reaction [Unknown]
  - Wrong technique in product usage process [Unknown]
  - Oropharyngeal discomfort [Unknown]
  - Paraesthesia oral [Unknown]
  - Palpitations [Unknown]
  - Anxiety [Unknown]
  - Feeling abnormal [Unknown]
  - Living in residential institution [Unknown]
  - Off label use [Unknown]
  - Depersonalisation/derealisation disorder [Unknown]
  - Alopecia [Unknown]
  - Vision blurred [Unknown]
  - Muscle spasms [Unknown]
  - Agitation [Unknown]
  - Limb discomfort [Unknown]
  - Restless legs syndrome [Unknown]
  - Deposit eye [Unknown]
  - Weight increased [Unknown]

NARRATIVE: CASE EVENT DATE: 20250701
